FAERS Safety Report 8974575 (Version 1)
Quarter: 2012Q4

REPORT INFORMATION
  Report Type: 
  Country: US (occurrence: US)
  Receive Date: 20121219
  Receipt Date: 20121219
  Transmission Date: 20130627
  Serious: No
  Sender: FDA-Public Use
  Company Number: US-AMGEN-USASP2012057456

PATIENT
  Age: 84 Year
  Sex: Female

DRUGS (6)
  1. PROLIA [Suspect]
     Indication: OSTEOPENIA
     Dosage: UNK UNK, q6mo
     Dates: start: 201203
  2. PROLIA [Suspect]
     Indication: OSTEOPENIA
  3. SYNTHROID [Concomitant]
     Indication: THYROID DISORDER
     Dosage: UNK
  4. VITAMINS NOS [Concomitant]
  5. MULTIVITAMIN                       /00097801/ [Concomitant]
     Dosage: UNK
  6. LEVOTHYROXINE [Concomitant]
     Dosage: UNK

REACTIONS (12)
  - Nasopharyngitis [Recovering/Resolving]
  - Cerumen impaction [Recovering/Resolving]
  - Ear discomfort [Unknown]
  - Hypoacusis [Unknown]
  - Eyelids pruritus [Recovering/Resolving]
  - Dry eye [Recovering/Resolving]
  - Lacrimation increased [Unknown]
  - Eye discharge [Unknown]
  - Vision blurred [Recovering/Resolving]
  - Vaginal infection [Recovered/Resolved]
  - Pruritus [Unknown]
  - Middle insomnia [Unknown]
